FAERS Safety Report 5832100-3 (Version None)
Quarter: 2008Q3

REPORT INFORMATION
  Report Type: 
  Country: None (occurrence: None)
  Receive Date: 20080731
  Receipt Date: 20080723
  Transmission Date: 20090109
  Serious: Yes (Other)
  Sender: FDA-Public Use
  Company Number: 163-20785-07040373

PATIENT
  Age: 42 Year
  Sex: Female

DRUGS (3)
  1. THALOMID [Suspect]
     Indication: METASTASIS
     Dosage: 200 MG, DAILY  X28 DAYS, ORAL; 200-400MG, DAILY X 28 DAYS, ORAL; 200 MG DAILY,ORAL
     Route: 048
     Dates: start: 20060701, end: 20061001
  2. THALOMID [Suspect]
     Indication: METASTASIS
     Dosage: 200 MG, DAILY  X28 DAYS, ORAL; 200-400MG, DAILY X 28 DAYS, ORAL; 200 MG DAILY,ORAL
     Route: 048
     Dates: start: 20061101, end: 20070814
  3. THALOMID [Suspect]
     Indication: METASTASIS
     Dosage: 200 MG, DAILY  X28 DAYS, ORAL; 200-400MG, DAILY X 28 DAYS, ORAL; 200 MG DAILY,ORAL
     Route: 048
     Dates: start: 20071015

REACTIONS (1)
  - BLOOD HUMAN CHORIONIC GONADOTROPIN INCREASED [None]
